FAERS Safety Report 11535844 (Version 2)
Quarter: 2015Q4

REPORT INFORMATION
  Report Type: Spontaneous
  Country: UA (occurrence: UA)
  Receive Date: 20150922
  Receipt Date: 20151001
  Transmission Date: 20160304
  Serious: Yes (Hospitalization, Other)
  Sender: FDA-Public Use
  Company Number: UA-SA-2015SA069259

PATIENT
  Sex: Male
  Weight: 7.5 kg

DRUGS (2)
  1. CEREZYME [Suspect]
     Active Substance: IMIGLUCERASE
     Indication: MATERNAL EXPOSURE TIMING UNSPECIFIED
     Route: 063
  2. PARACETAMOL [Concomitant]
     Active Substance: ACETAMINOPHEN
     Dates: start: 20150514, end: 20150614

REACTIONS (2)
  - Exposure during breast feeding [Unknown]
  - Testicular necrosis [Recovered/Resolved]

NARRATIVE: CASE EVENT DATE: 201506
